FAERS Safety Report 6136341-X (Version None)
Quarter: 2009Q1

REPORT INFORMATION
  Report Type: 
  Country: None (occurrence: None)
  Receive Date: 20090330
  Receipt Date: 20090324
  Transmission Date: 20090719
  Serious: Yes (Hospitalization)
  Sender: FDA-Public Use
  Company Number: JP-BAYER-200811462BYL

PATIENT
  Age: 79 Year
  Sex: Male
  Weight: 51 kg

DRUGS (10)
  1. NEXAVAR [Suspect]
     Indication: RENAL CELL CARCINOMA STAGE IV
     Dosage: TOTAL DAILY DOSE: 800 MG  UNIT DOSE: 200 MG
     Route: 048
     Dates: start: 20080616, end: 20080627
  2. NEXAVAR [Suspect]
     Dosage: TOTAL DAILY DOSE: 400 MG  UNIT DOSE: 200 MG
     Route: 048
     Dates: start: 20090105
  3. NEXAVAR [Suspect]
     Dosage: TOTAL DAILY DOSE: 200 MG  UNIT DOSE: 200 MG
     Route: 048
  4. NEXAVAR [Suspect]
     Dosage: TOTAL DAILY DOSE: 400 MG  UNIT DOSE: 200 MG
     Route: 048
     Dates: start: 20080918, end: 20081117
  5. ZYLORIC [Concomitant]
     Route: 048
     Dates: start: 20080616
  6. ITOROL [Concomitant]
     Route: 048
     Dates: start: 20080616
  7. KREMEZIN [Concomitant]
     Route: 048
     Dates: start: 20080616
  8. SIGMART [Concomitant]
     Route: 048
     Dates: start: 20080616
  9. SELOKEN [Concomitant]
     Route: 048
     Dates: start: 20080616
  10. NIZORAL [Concomitant]
     Dosage: UNIT DOSE: 2 %
     Route: 061
     Dates: start: 20081007, end: 20081112

REACTIONS (5)
  - ANAEMIA [None]
  - DRUG ERUPTION [None]
  - HYPERTENSION [None]
  - PLATELET COUNT DECREASED [None]
  - RENAL IMPAIRMENT [None]
